FAERS Safety Report 16681560 (Version 1)
Quarter: 2019Q3

REPORT INFORMATION
  Report Type: Spontaneous
  Country: US (occurrence: US)
  Receive Date: 20190622
  Receipt Date: 20190622
  Transmission Date: 20191004
  Serious: Yes (Death, Hospitalization)
  Sender: FDA-Public Use
  Company Number: None

PATIENT
  Age: 67 Year
  Sex: Male
  Weight: 87.4 kg

DRUGS (1)
  1. NEXAVAR [Suspect]
     Active Substance: SORAFENIB
     Dates: end: 20150212

REACTIONS (6)
  - Hepatocellular carcinoma [None]
  - Acute kidney injury [None]
  - Dehydration [None]
  - Metastases to peritoneum [None]
  - Malignant neoplasm progression [None]
  - Portal vein thrombosis [None]

NARRATIVE: CASE EVENT DATE: 20150228
